FAERS Safety Report 8313031-6 (Version None)
Quarter: 2012Q2

REPORT INFORMATION
  Report Type: 
  Country: None (occurrence: None)
  Receive Date: 20120424
  Receipt Date: 20120417
  Transmission Date: 20120825
  Serious: Yes (Hospitalization)
  Sender: FDA-Public Use
  Company Number: GER/UKI/12/0023695

PATIENT
  Age: 37 Year
  Sex: Male

DRUGS (1)
  1. OMEPRAZOLE [Suspect]
     Indication: GASTROINTESTINAL DISORDER
     Dosage: ORAL
     Route: 048
     Dates: end: 20111001

REACTIONS (14)
  - ANAEMIA [None]
  - ANXIETY [None]
  - HYPERCHLORHYDRIA [None]
  - TEMPERATURE REGULATION DISORDER [None]
  - DRY SKIN [None]
  - DENTAL CARIES [None]
  - VOMITING [None]
  - PYREXIA [None]
  - NAUSEA [None]
  - JAUNDICE [None]
  - SKIN HAEMORRHAGE [None]
  - GASTRIC DISORDER [None]
  - PHOTOSENSITIVITY REACTION [None]
  - HAIR COLOUR CHANGES [None]
